FAERS Safety Report 7733803-6 (Version None)
Quarter: 2011Q3

REPORT INFORMATION
  Report Type: 
  Country: None (occurrence: None)
  Receive Date: 20110907
  Receipt Date: 20110901
  Transmission Date: 20111222
  Serious: Yes (Death, Hospitalization)
  Sender: FDA-Public Use
  Company Number: PHHY2010FR90981

PATIENT
  Sex: Male

DRUGS (1)
  1. ZOMETA [Suspect]
     Indication: METASTASES TO BONE
     Dosage: 4 MG, UNK
     Route: 042
     Dates: start: 20091101

REACTIONS (7)
  - HEADACHE [None]
  - BRONCHIAL NEOPLASM [None]
  - DEPRESSION [None]
  - COMA [None]
  - ANXIETY [None]
  - PUPILLARY DISORDER [None]
  - BALANCE DISORDER [None]
